FAERS Safety Report 9802828 (Version 1)
Quarter: 2014Q1

REPORT INFORMATION
  Report Type: Spontaneous
  Country: US (occurrence: None)
  Receive Date: 20140106
  Receipt Date: 20140106
  Transmission Date: 20141002
  Serious: Yes (Other)
  Sender: FDA-Public Use
  Company Number: None

PATIENT
  Age: 22 Year
  Sex: Male
  Weight: 65.77 kg

DRUGS (1)
  1. METHYLPHENIDATE ER [Suspect]
     Indication: ATTENTION DEFICIT/HYPERACTIVITY DISORDER
     Dosage: 36 MG/  2 PILLS   2 IN AM/  1 AT NOON  TAKEN BY MOUTH
     Route: 048

REACTIONS (2)
  - Product substitution issue [None]
  - Drug effect decreased [None]
